FAERS Safety Report 8158129-0 (Version None)
Quarter: 2012Q1

REPORT INFORMATION
  Report Type: 
  Country: None (occurrence: None)
  Receive Date: 20120222
  Receipt Date: 20120214
  Transmission Date: 20120608
  Serious: Yes (Hospitalization, Other)
  Sender: FDA-Public Use
  Company Number: PHHY2012TR012725

PATIENT
  Age: 38 Year
  Sex: Female

DRUGS (3)
  1. RIFAMPICIN [Suspect]
     Indication: BRUCELLOSIS
  2. STREPTOMYCIN [Suspect]
     Indication: BRUCELLOSIS
  3. TETRACYCLINE [Concomitant]

REACTIONS (6)
  - MUSCLE SPASMS [None]
  - VITAMIN D DEFICIENCY [None]
  - PARAESTHESIA [None]
  - HYPOKALAEMIA [None]
  - ALKALOSIS [None]
  - HYPOCALCAEMIA [None]
